FAERS Safety Report 21998240 (Version 1)
Quarter: 2023Q1

REPORT INFORMATION
  Report Type: Spontaneous
  Country: US (occurrence: US)
  Receive Date: 20230216
  Receipt Date: 20230216
  Transmission Date: 20230418
  Serious: No
  Sender: FDA-Public Use
  Company Number: US-BRISTOL-MYERS SQUIBB COMPANY-2023-023234

PATIENT
  Age: 64 Year
  Sex: Male
  Weight: 79.38 kg

DRUGS (1)
  1. REVLIMID [Suspect]
     Active Substance: LENALIDOMIDE
     Indication: Plasma cell myeloma
     Dosage: FREQUENCY: 21 DAYS ON 7 OFF
     Route: 048
     Dates: start: 202107

REACTIONS (2)
  - Red blood cell count abnormal [Unknown]
  - White blood cell disorder [Unknown]

NARRATIVE: CASE EVENT DATE: 20230101
